FAERS Safety Report 5117005-8 (Version None)
Quarter: 2006Q3

REPORT INFORMATION
  Report Type: 
  Country: None (occurrence: None)
  Receive Date: 20060925
  Receipt Date: 20060912
  Transmission Date: 20061208
  Serious: Yes (Hospitalization)
  Sender: FDA-Public Use
  Company Number: 2006113165

PATIENT
  Age: 46 Year
  Sex: Female

DRUGS (1)
  1. PREDNISOLONE [Suspect]
     Dosage: 40 MG (1 IN 1 D), ORAL
     Route: 048

REACTIONS (17)
  - BACTERIA BLOOD IDENTIFIED [None]
  - BLOOD GLUCOSE INCREASED [None]
  - CENTRAL NERVOUS SYSTEM LESION [None]
  - CSF BACTERIA IDENTIFIED [None]
  - CSF NEUTROPHIL COUNT POSITIVE [None]
  - CSF PRESSURE INCREASED [None]
  - CSF PROTEIN INCREASED [None]
  - FEELING ABNORMAL [None]
  - GAZE PALSY [None]
  - HEADACHE [None]
  - HEMIPARESIS [None]
  - LISTERIOSIS [None]
  - LOSS OF CONSCIOUSNESS [None]
  - MOTOR DYSFUNCTION [None]
  - NUCHAL RIGIDITY [None]
  - PYREXIA [None]
  - SOMNOLENCE [None]
